FAERS Safety Report 24242827 (Version 1)
Quarter: 2024Q3

REPORT INFORMATION
  Report Type: Report from Study
  Country: FR (occurrence: FR)
  Receive Date: 20240823
  Receipt Date: 20240823
  Transmission Date: 20241016
  Serious: Yes (Hospitalization, Other)
  Sender: SERVIER
  Company Number: FR-SERVIER-S22002939

PATIENT

DRUGS (13)
  1. PEGASPARGASE [Suspect]
     Active Substance: PEGASPARGASE
     Indication: Acute lymphocytic leukaemia
     Dosage: 213.5 IU, D8
     Route: 042
     Dates: start: 20220317, end: 20220317
  2. CYCLOPHOSPHAMIDE [Suspect]
     Active Substance: CYCLOPHOSPHAMIDE
     Indication: Acute lymphocytic leukaemia
     Dosage: 750 MG, D1, D29
     Route: 042
     Dates: start: 20220319, end: 20220420
  3. MERCAPTOPURINE [Suspect]
     Active Substance: MERCAPTOPURINE
     Indication: Acute lymphocytic leukaemia
     Dosage: 45 MG, D1 TO D14, D29 TO D42
     Route: 048
     Dates: start: 20220319, end: 20220503
  4. CYTARABINE [Suspect]
     Active Substance: CYTARABINE
     Indication: Acute lymphocytic leukaemia
     Dosage: 57 MG, D3-D6, D10-D11
     Route: 042
     Dates: start: 20220321, end: 20220402
  5. CYTARABINE [Suspect]
     Active Substance: CYTARABINE
     Dosage: 30 MG, D31
     Route: 037
     Dates: start: 20220422, end: 20220422
  6. VINCRISTINE [Suspect]
     Active Substance: VINCRISTINE
     Indication: Acute lymphocytic leukaemia
     Dosage: 1.1 MG, D15, D22
     Route: 042
     Dates: start: 20220406, end: 20220413
  7. METHOTREXATE [Suspect]
     Active Substance: METHOTREXATE
     Indication: Acute lymphocytic leukaemia
     Dosage: 12 MG, D31
     Route: 037
     Dates: start: 20220422, end: 20220422
  8. HYDROCORTISONE [Suspect]
     Active Substance: HYDROCORTISONE\HYDROCORTISONE ACETATE
     Indication: Acute lymphocytic leukaemia
     Dosage: 15 MG, D31
     Route: 037
     Dates: start: 20220422, end: 20220422
  9. ACETAMINOPHEN [Concomitant]
     Active Substance: ACETAMINOPHEN
     Indication: Pain prophylaxis
     Dosage: 4 DOSES
     Route: 048
     Dates: start: 20220507, end: 20220518
  10. SULFAMETHOXAZOLE\TRIMETHOPRIM [Concomitant]
     Active Substance: SULFAMETHOXAZOLE\TRIMETHOPRIM
     Indication: Infection prophylaxis
     Dosage: 500 MG/12.5 ML
     Route: 048
     Dates: start: 20220329, end: 20220518
  11. POLYETHYLENE GLYCOLS [Concomitant]
     Active Substance: POLYETHYLENE GLYCOLS
     Indication: Constipation prophylaxis
     Dosage: 4 G
     Route: 048
     Dates: start: 20220329, end: 20220518
  12. Dexeryl [Concomitant]
     Indication: Prophylaxis
     Dosage: 250 MG
     Route: 065
     Dates: start: 20220329, end: 20220518
  13. SODIUM BICARBONATE [Concomitant]
     Active Substance: SODIUM BICARBONATE
     Indication: Prophylaxis
     Dosage: 1.4% 250 ML
     Route: 048
     Dates: start: 20220329, end: 20220518

REACTIONS (3)
  - Parainfluenzae virus infection [Recovered/Resolved]
  - Febrile bone marrow aplasia [Recovered/Resolved]
  - Hypersensitivity [Recovered/Resolved]

NARRATIVE: CASE EVENT DATE: 20220317
